FAERS Safety Report 24078446 (Version 1)
Quarter: 2024Q3

REPORT INFORMATION
  Report Type: Spontaneous
  Country: CN (occurrence: CN)
  Receive Date: 20240711
  Receipt Date: 20240711
  Transmission Date: 20241017
  Serious: Yes (Other)
  Sender: EMD SERONO INC
  Company Number: CN-Merck Healthcare KGaA-2024035748

PATIENT
  Age: 77 Year
  Sex: Female
  Weight: 51 kg

DRUGS (7)
  1. EUTHYROX [Suspect]
     Active Substance: LEVOTHYROXINE SODIUM
     Indication: Hyperthyroidism
     Route: 048
     Dates: start: 20240429, end: 20240612
  2. LEVOTHYROXINE SODIUM [Suspect]
     Active Substance: LEVOTHYROXINE SODIUM
     Indication: Hyperthyroidism
     Route: 048
     Dates: start: 20240219, end: 20240429
  3. WARFARIN SODIUM [Suspect]
     Active Substance: WARFARIN SODIUM
     Indication: Thyrotoxic cardiomyopathy
     Route: 048
     Dates: start: 20240219, end: 20240603
  4. OLMESARTAN MEDOXOMIL [Suspect]
     Active Substance: OLMESARTAN MEDOXOMIL
     Indication: Cardiac failure chronic
     Route: 048
     Dates: start: 20240219, end: 20240618
  5. TORSEMIDE [Suspect]
     Active Substance: TORSEMIDE
     Indication: Thyrotoxic cardiomyopathy
     Route: 048
     Dates: start: 20240219, end: 20240429
  6. TORSEMIDE [Suspect]
     Active Substance: TORSEMIDE
     Route: 048
     Dates: start: 20240603, end: 20240612
  7. BISOPROLOL FUMARATE [Suspect]
     Active Substance: BISOPROLOL FUMARATE
     Indication: Thyrotoxic cardiomyopathy
     Route: 048
     Dates: start: 20240219, end: 20240618

REACTIONS (3)
  - International normalised ratio increased [Recovering/Resolving]
  - Haemorrhage [Recovering/Resolving]
  - Headache [Recovering/Resolving]

NARRATIVE: CASE EVENT DATE: 20240613
